FAERS Safety Report 4940251-0 (Version None)
Quarter: 2006Q1

REPORT INFORMATION
  Report Type: 
  Country: None (occurrence: None)
  Receive Date: 20060310
  Receipt Date: 20051010
  Transmission Date: 20060701
  Serious: Yes (Hospitalization, Disabling)
  Sender: FDA-Public Use
  Company Number: US-MERCK-0510USA06285

PATIENT
  Age: 57 Year
  Sex: Female
  Weight: 145 kg

DRUGS (1)
  1. VIOXX [Suspect]
     Indication: PAIN
     Route: 048
     Dates: start: 19990501, end: 20040805

REACTIONS (5)
  - CEREBROVASCULAR ACCIDENT [None]
  - FALL [None]
  - MENISCUS LESION [None]
  - PAIN [None]
  - PATELLOFEMORAL PAIN SYNDROME [None]
